FAERS Safety Report 21200354 (Version 3)
Quarter: 2025Q2

REPORT INFORMATION
  Report Type: Spontaneous
  Country: FR (occurrence: FR)
  Receive Date: 20220811
  Receipt Date: 20250407
  Transmission Date: 20250716
  Serious: Yes (Other)
  Sender: SANOFI AVENTIS
  Company Number: None

PATIENT
  Age: 64 Year
  Sex: Male
  Weight: 76 kg

DRUGS (8)
  1. HEPARIN CALCIUM [Suspect]
     Active Substance: HEPARIN CALCIUM
     Indication: Deep vein thrombosis
     Route: 058
     Dates: start: 20220701, end: 20220719
  2. AMIODARONE HYDROCHLORIDE [Suspect]
     Active Substance: AMIODARONE HYDROCHLORIDE
  3. TAMSULOSIN HYDROCHLORIDE [Suspect]
     Active Substance: TAMSULOSIN HYDROCHLORIDE
     Indication: Product used for unknown indication
  4. LANSOPRAZOLE [Suspect]
     Active Substance: LANSOPRAZOLE
  5. DAPAGLIFLOZIN [Suspect]
     Active Substance: DAPAGLIFLOZIN
  6. BISOPROLOL FUMARATE [Suspect]
     Active Substance: BISOPROLOL FUMARATE
  7. SPIRONOLACTONE [Suspect]
     Active Substance: SPIRONOLACTONE
  8. POTASSIUM CHLORIDE [Suspect]
     Active Substance: POTASSIUM CHLORIDE

REACTIONS (4)
  - Heparin-induced thrombocytopenia [Recovering/Resolving]
  - Sepsis [Recovered/Resolved]
  - Pulmonary mass [Unknown]
  - Pulmonary mass [Unknown]

NARRATIVE: CASE EVENT DATE: 20220710
